FAERS Safety Report 9724883 (Version 1)
Quarter: 2013Q4

REPORT INFORMATION
  Report Type: Spontaneous
  Country: US (occurrence: US)
  Receive Date: 20131202
  Receipt Date: 20131202
  Transmission Date: 20140711
  Serious: No
  Sender: FDA-Public Use
  Company Number: US-ENDO PHARMACEUTICALS INC.-OXYC20120047

PATIENT
  Age: 37 Year
  Sex: Female

DRUGS (1)
  1. OXYCODONE HCL 30MG [Suspect]
     Indication: PAIN
     Route: 048
     Dates: start: 20120906

REACTIONS (3)
  - Disorientation [Unknown]
  - Dizziness [Unknown]
  - Drug ineffective [Unknown]
